FAERS Safety Report 7266225-5 (Version None)
Quarter: 2011Q1

REPORT INFORMATION
  Report Type: 
  Country: None (occurrence: None)
  Receive Date: 20110131
  Receipt Date: 20110118
  Transmission Date: 20110831
  Serious: No
  Sender: FDA-Public Use
  Company Number: US-ABBOTT-11P-163-0699933-00

PATIENT
  Sex: Male

DRUGS (2)
  1. CASODEX [Concomitant]
     Indication: PROSTATE CANCER
  2. LUPRON DEPOT [Suspect]
     Indication: PROSTATE CANCER
     Dates: start: 20080301

REACTIONS (1)
  - PROSTATIC SPECIFIC ANTIGEN INCREASED [None]
